FAERS Safety Report 6828911-8 (Version None)
Quarter: 2010Q3

REPORT INFORMATION
  Report Type: 
  Country: None (occurrence: None)
  Receive Date: 20100706
  Receipt Date: 20080710
  Transmission Date: 20110219
  Serious: Yes (Hospitalization)
  Sender: FDA-Public Use
  Company Number: 2008AL008194

PATIENT
  Age: 73 Year
  Sex: Female

DRUGS (11)
  1. CETIRIZINE HCL [Suspect]
     Dosage: PO
     Route: 048
     Dates: end: 20080620
  2. CALCICHEW D3 [Concomitant]
  3. NULYTELY [Concomitant]
  4. NICOTINE [Concomitant]
  5. SIMVASTATIN [Concomitant]
  6. TROSPIUM CHLORIDE [Concomitant]
  7. SENNA [Concomitant]
  8. MAGNESIUM HYDROXIDE TAB [Concomitant]
  9. CYCLIZINE [Concomitant]
  10. CODEINE [Concomitant]
  11. PARACETAMOL [Concomitant]

REACTIONS (1)
  - PLATELET COUNT INCREASED [None]
